FAERS Safety Report 4743832-2 (Version None)
Quarter: 2005Q3

REPORT INFORMATION
  Report Type: 
  Country: None (occurrence: None)
  Receive Date: 20050812
  Receipt Date: 20050719
  Transmission Date: 20060218
  Serious: Yes (Death)
  Sender: FDA-Public Use
  Company Number: US-MERCK-0507USA02767

PATIENT
  Age: 90 Year
  Sex: Female
  Weight: 59 kg

DRUGS (1)
  1. FOSAMAX [Suspect]
     Indication: OSTEOPOROSIS
     Route: 048
     Dates: start: 19980101, end: 20050806

REACTIONS (4)
  - ADVERSE EVENT [None]
  - CHEST PAIN [None]
  - DRUG INEFFECTIVE [None]
  - PAIN [None]
